FAERS Safety Report 7424720-X (Version None)
Quarter: 2011Q2

REPORT INFORMATION
  Report Type: 
  Country: None (occurrence: None)
  Receive Date: 20110419
  Receipt Date: 20110414
  Transmission Date: 20111010
  Serious: Yes (Hospitalization)
  Sender: FDA-Public Use
  Company Number: DE-CEPHALON-2011000991

PATIENT
  Age: 73 Year
  Sex: Female

DRUGS (12)
  1. ZYLORIC [Concomitant]
     Dates: start: 20101130
  2. AUGMENTIN [Concomitant]
     Dates: start: 20110209, end: 20110211
  3. TEMSIROLIMUS [Suspect]
     Indication: MANTLE CELL LYMPHOMA
     Dates: start: 20101202, end: 20110302
  4. RITUXIMAB [Suspect]
     Indication: MANTLE CELL LYMPHOMA
     Dates: start: 20101130
  5. ACETAMINOPHEN [Concomitant]
     Dates: start: 20101130
  6. CETIRIZINE HCL [Concomitant]
     Dates: start: 20101130
  7. CLARITHROMYCIN [Concomitant]
     Dates: start: 20110209, end: 20110211
  8. BENDAMUSTINE HCL [Suspect]
     Indication: MANTLE CELL LYMPHOMA
     Route: 042
     Dates: start: 20101201
  9. ALENDRONATE SODIUM [Concomitant]
     Dates: start: 20060101
  10. FENISTIL [Concomitant]
     Dates: start: 20101202
  11. COTRIM [Concomitant]
  12. KEVATRIL [Concomitant]
     Dates: start: 20101201

REACTIONS (1)
  - PNEUMONITIS [None]
